FAERS Safety Report 8680082 (Version 2)
Quarter: 2013Q3

REPORT INFORMATION
  Report Type: Report from Study
  Country: DE (occurrence: DE)
  Receive Date: 20120724
  Receipt Date: 20130808
  Transmission Date: 20140515
  Serious: Yes (Life-Threatening, Hospitalization)
  Sender: FDA-Public Use
  Company Number: DE-ROCHE-1078844

PATIENT
  Age: 91 Year
  Sex: Male
  Weight: 71.2 kg

DRUGS (8)
  1. METHOXY POLYETHYLENE GLYCOL-EPOETIN BETA [Suspect]
     Indication: PRODUCT USED FOR UNKNOWN INDICATION
     Dosage: DATE OF LAST DOSE PIROR TO SAE 19/MAR/2012
     Route: 042
     Dates: start: 20120314
  2. ASS [Concomitant]
     Route: 065
     Dates: start: 20110218
  3. EUTHYROX [Concomitant]
     Route: 065
     Dates: start: 20110218
  4. TORASEMID [Concomitant]
     Route: 065
     Dates: start: 20110304
  5. CITALOPRAM [Concomitant]
     Route: 065
     Dates: start: 20120125
  6. PHOSPHONORM [Concomitant]
     Route: 065
     Dates: start: 20110506
  7. DREISAVIT N [Concomitant]
     Route: 065
     Dates: start: 20110718
  8. IRON SUCCINYL-PROTEIN COMPLEX [Concomitant]
     Route: 065
     Dates: start: 20111019

REACTIONS (1)
  - Pneumonia [Recovered/Resolved]
